FAERS Safety Report 13140826 (Version 2)
Quarter: 2017Q1

REPORT INFORMATION
  Report Type: Spontaneous
  Country: JP (occurrence: JP)
  Receive Date: 20170123
  Receipt Date: 20170316
  Transmission Date: 20170428
  Serious: Yes (Other)
  Sender: FDA-Public Use
  Company Number: JP-EMD SERONO-8136751

PATIENT
  Sex: Female

DRUGS (2)
  1. HCG [Concomitant]
     Active Substance: GONADOTROPHIN, CHORIONIC
     Indication: OVULATION DISORDER
  2. GONAL-F RFF [Suspect]
     Active Substance: FOLLITROPIN
     Indication: OVULATION INDUCTION
     Route: 058
     Dates: start: 201203, end: 201203

REACTIONS (1)
  - Abortion missed [Recovered/Resolved]

NARRATIVE: CASE EVENT DATE: 201205
